FAERS Safety Report 8545175-8 (Version None)
Quarter: 2012Q3

REPORT INFORMATION
  Report Type: 
  Country: None (occurrence: None)
  Receive Date: 20120727
  Receipt Date: 20120712
  Transmission Date: 20120928
  Serious: Yes (Hospitalization)
  Sender: FDA-Public Use
  Company Number: DE-ROCHE-1093489

PATIENT
  Age: 58 Year
  Sex: Female
  Weight: 71 kg

DRUGS (3)
  1. AVASTIN [Suspect]
     Indication: OVARIAN CANCER
     Dosage: DATE OF LAST DOSE- 20/JUN/2012.
     Route: 042
     Dates: start: 20120620, end: 20120620
  2. PACLITAXEL [Suspect]
     Indication: OVARIAN CANCER
     Dosage: DATE OF LAST DOSE- 20/JUN/2012.
     Route: 042
     Dates: start: 20120620
  3. CARBOPLATIN [Suspect]
     Indication: OVARIAN CANCER
     Dosage: DATE OF LAST DOSE- 20/JUN/2012.
     Route: 042
     Dates: start: 20120620

REACTIONS (2)
  - PARANEOPLASTIC CEREBELLAR DEGENERATION [None]
  - ATAXIA [None]
